FAERS Safety Report 7128381-9 (Version None)
Quarter: 2010Q4

REPORT INFORMATION
  Report Type: 
  Country: None (occurrence: None)
  Receive Date: 20101130
  Receipt Date: 20101125
  Transmission Date: 20110411
  Serious: Yes (Life-Threatening, Hospitalization)
  Sender: FDA-Public Use
  Company Number: DE-NOVOPROD-302007

PATIENT
  Sex: Female
  Weight: 75 kg

DRUGS (6)
  1. LEVEMIR [Suspect]
     Indication: TYPE 2 DIABETES MELLITUS
     Dosage: 24 U, QD
     Dates: start: 20060203, end: 20091103
  2. ASPIRIN [Concomitant]
     Dosage: UNK
     Route: 048
  3. AMLODIPINE BESYLATE [Concomitant]
     Dosage: UNK
     Route: 048
  4. BISOPROLOL [Concomitant]
     Dosage: UNK
     Route: 048
  5. EUTHYROX [Concomitant]
     Dosage: UNK
     Route: 048
  6. GABAPENTIN [Concomitant]
     Dosage: UNK
     Route: 048

REACTIONS (5)
  - DIARRHOEA [None]
  - HYPOCALCAEMIA [None]
  - HYPOKALAEMIA [None]
  - LIPASE INCREASED [None]
  - WEIGHT DECREASED [None]
